FAERS Safety Report 7581495-1 (Version None)
Quarter: 2011Q2

REPORT INFORMATION
  Report Type: 
  Country: None (occurrence: None)
  Receive Date: 20110629
  Receipt Date: 20110620
  Transmission Date: 20111010
  Serious: Yes (Hospitalization)
  Sender: FDA-Public Use
  Company Number: PHFR2011GB03770

PATIENT
  Sex: Male

DRUGS (2)
  1. TEGRETOL [Suspect]
     Dosage: 600 MG, BID
  2. TEGRETOL [Suspect]
     Dosage: 400 MG, BID

REACTIONS (3)
  - CONFUSIONAL STATE [None]
  - CONVULSION [None]
  - VISION BLURRED [None]
